FAERS Safety Report 5123555-0 (Version None)
Quarter: 2006Q3

REPORT INFORMATION
  Report Type: 
  Country: None (occurrence: None)
  Receive Date: 20060801
  Receipt Date: 20051130
  Transmission Date: 20061208
  Serious: Yes (Other)
  Sender: FDA-Public Use
  Company Number: 2005163778

PATIENT
  Age: 38 Year
  Sex: Male

DRUGS (1)
  1. CAMPTOSAR [Suspect]
     Indication: COLON CANCER METASTATIC
     Dosage: 125 MG/M2 (WEEKLY)
     Dates: start: 20051021

REACTIONS (5)
  - BLOOD BILIRUBIN INCREASED [None]
  - DRUG INEFFECTIVE [None]
  - FEAR [None]
  - MALAISE [None]
  - WHITE BLOOD CELL COUNT DECREASED [None]
